FAERS Safety Report 12928088 (Version 1)
Quarter: 2016Q4

REPORT INFORMATION
  Report Type: Spontaneous
  Country: FR (occurrence: FR)
  Receive Date: 20161110
  Receipt Date: 20161110
  Transmission Date: 20170207
  Serious: Yes (Other)
  Sender: FDA-Public Use
  Company Number: FR-009507513-1611FRA001647

PATIENT
  Age: 15 Year
  Sex: Female

DRUGS (5)
  1. NOXAFIL [Suspect]
     Active Substance: POSACONAZOLE
     Indication: CYSTIC FIBROSIS
     Dosage: 10 ML, BID
     Route: 048
     Dates: start: 2015
  2. NOXAFIL [Suspect]
     Active Substance: POSACONAZOLE
     Dosage: 17 ML, BID
     Route: 048
     Dates: start: 2016, end: 2016
  3. NOXAFIL [Suspect]
     Active Substance: POSACONAZOLE
     Dosage: 15 ML, BID
     Route: 048
     Dates: end: 20160202
  4. NOXAFIL [Suspect]
     Active Substance: POSACONAZOLE
     Dosage: 20 ML, BID
     Route: 048
     Dates: start: 2016, end: 20160419
  5. ORKAMBI [Suspect]
     Active Substance: IVACAFTOR\LUMACAFTOR
     Indication: CYSTIC FIBROSIS
     Dosage: UNK
     Route: 048
     Dates: start: 20160112

REACTIONS (1)
  - Drug level below therapeutic [Recovering/Resolving]

NARRATIVE: CASE EVENT DATE: 20160202
